FAERS Safety Report 8140270-X (Version None)
Quarter: 2012Q1

REPORT INFORMATION
  Report Type: 
  Country: None (occurrence: None)
  Receive Date: 20120216
  Receipt Date: 20110525
  Transmission Date: 20120608
  Serious: Yes (Hospitalization, Disabling)
  Sender: FDA-Public Use
  Company Number: US-BAYER-2011-011683

PATIENT
  Sex: Female
  Weight: 78.912 kg

DRUGS (6)
  1. YASMIN [Suspect]
     Indication: PREMENSTRUAL SYNDROME
     Dosage: UNK
     Dates: start: 20060301, end: 20070101
  2. NEXIUM [Concomitant]
     Dosage: 40 MG, QD
     Dates: start: 20061001, end: 20070301
  3. CLARITIN-D [Concomitant]
     Dosage: UNK UNK, QD
     Dates: start: 20061201, end: 20070301
  4. LEVOTHYROXINE SODIUM [Concomitant]
     Dosage: 175 ?G, QD
     Dates: start: 20010101
  5. SINGULAIR [Concomitant]
     Dosage: 10 MG, QD
     Dates: start: 20061201, end: 20070101
  6. MOTRIN [Concomitant]
     Dosage: 200 MG, PRN
     Dates: start: 20061201, end: 20070101

REACTIONS (5)
  - ANXIETY [None]
  - DEEP VEIN THROMBOSIS [None]
  - AFFECTIVE DISORDER [None]
  - DEPRESSION [None]
  - PULMONARY EMBOLISM [None]
